FAERS Safety Report 10750781 (Version 2)
Quarter: 2015Q4

REPORT INFORMATION
  Report Type: Spontaneous
  Country: US (occurrence: US)
  Receive Date: 20150130
  Receipt Date: 20151012
  Transmission Date: 20160304
  Serious: Yes (Hospitalization, Other)
  Sender: FDA-Public Use
  Company Number: US-BAYER-2015-008695

PATIENT
  Age: 33 Year
  Sex: Female
  Weight: 63.49 kg

DRUGS (3)
  1. SYNTHROID [Concomitant]
     Active Substance: LEVOTHYROXINE SODIUM
     Indication: HYPOTHYROIDISM
     Dosage: UNK
     Dates: start: 1995
  2. MIRENA [Suspect]
     Active Substance: LEVONORGESTREL
     Indication: CONTRACEPTION
     Dosage: 20 MCG/24HR, CONT
     Route: 015
     Dates: start: 20130129, end: 20130202
  3. MICRONOR [Concomitant]
     Active Substance: NORETHINDRONE

REACTIONS (7)
  - Uterine perforation [None]
  - Device dislocation [None]
  - Pain [None]
  - Medical device pain [None]
  - Injury [None]
  - Procedural pain [None]
  - Post procedural haemorrhage [None]

NARRATIVE: CASE EVENT DATE: 20130129
